FAERS Safety Report 9723020 (Version 1)
Quarter: 2013Q4

REPORT INFORMATION
  Report Type: Spontaneous
  Country: US (occurrence: None)
  Receive Date: 20131127
  Receipt Date: 20131127
  Transmission Date: 20140711
  Serious: Yes (Life-Threatening, Hospitalization)
  Sender: FDA-Public Use
  Company Number: None

PATIENT
  Age: 58 Year
  Sex: Male
  Weight: 93.3 kg

DRUGS (2)
  1. DENOSUMAB [Suspect]
     Indication: METASTASES TO BONE
     Dosage: MONTHLY  SUBCUTANEOUS
     Route: 058
  2. AXITINIB [Concomitant]

REACTIONS (5)
  - Pain in extremity [None]
  - Swelling [None]
  - Hypocalcaemia [None]
  - Hypomagnesaemia [None]
  - Renal disorder [None]
